FAERS Safety Report 5364007-2 (Version None)
Quarter: 2007Q2

REPORT INFORMATION
  Report Type: 
  Country: None (occurrence: None)
  Receive Date: 20070620
  Receipt Date: 20070611
  Transmission Date: 20071010
  Serious: Yes (Other)
  Sender: FDA-Public Use
  Company Number: US-ELI_LILLY_AND_COMPANY-US200704005644

PATIENT
  Age: 33 Year
  Sex: Male

DRUGS (10)
  1. RELAFEN [Concomitant]
  2. VALIUM [Concomitant]
  3. SONATA [Concomitant]
  4. CYMBALTA [Suspect]
     Indication: DEPRESSION
     Dosage: 60 MG, 2/D
     Dates: start: 20070401, end: 20070410
  5. CYMBALTA [Suspect]
     Dosage: 60 MG, UNK
     Dates: start: 20070302, end: 20070401
  6. CYMBALTA [Suspect]
     Dosage: 90 MG, UNK
     Dates: start: 20070401, end: 20070401
  7. CYMBALTA [Suspect]
     Dosage: 30 MG, UNK
     Dates: start: 20070223, end: 20070301
  8. OXYCONTIN [Concomitant]
     Indication: PAIN
     Dosage: 80 MG, UNK
     Dates: start: 20051129
  9. OXYCODONE HCL [Concomitant]
     Indication: PAIN
     Dosage: 30 MG, UNK
     Dates: start: 20051115
  10. DILANTIN [Concomitant]
     Indication: PAIN
     Dosage: 250 MG, UNK
     Dates: start: 20051129

REACTIONS (2)
  - BRADYARRHYTHMIA [None]
  - PAIN [None]
